FAERS Safety Report 24763278 (Version 1)
Quarter: 2024Q4

REPORT INFORMATION
  Report Type: Other
  Country: US (occurrence: US)
  Receive Date: 20241222
  Receipt Date: 20241222
  Transmission Date: 20250114
  Serious: Yes (Other)
  Sender: HLS THERAPEUTICS
  Company Number: US-HLS-202402078

PATIENT
  Age: 44 Year
  Sex: Male

DRUGS (13)
  1. CLOZAPINE [Suspect]
     Active Substance: CLOZAPINE
     Indication: Agitation
     Dosage: 6.25MG/D?REGIMEN #3
     Route: 065
     Dates: start: 202309
  2. CLOZAPINE [Suspect]
     Active Substance: CLOZAPINE
     Indication: Hallucinations, mixed
     Dosage: 6.25MG/D?REGIMEN #3
     Route: 065
     Dates: start: 202309
  3. CLOZAPINE [Suspect]
     Active Substance: CLOZAPINE
     Indication: Delusion
     Dosage: 6.25MG/D?REGIMEN #3
     Route: 065
     Dates: start: 202309
  4. CLOZAPINE [Suspect]
     Active Substance: CLOZAPINE
     Indication: Agitation
     Dosage: REGIMEN #1
     Route: 065
  5. CLOZAPINE [Suspect]
     Active Substance: CLOZAPINE
     Indication: Hallucinations, mixed
     Dosage: REGIMEN #1
     Route: 065
  6. CLOZAPINE [Suspect]
     Active Substance: CLOZAPINE
     Indication: Delusion
     Dosage: REGIMEN #1
     Route: 065
  7. CLOZAPINE [Suspect]
     Active Substance: CLOZAPINE
     Indication: Agitation
     Dosage: REGIMEN #2
     Route: 065
     Dates: start: 202307
  8. CLOZAPINE [Suspect]
     Active Substance: CLOZAPINE
     Indication: Hallucinations, mixed
     Dosage: REGIMEN #2
     Route: 065
     Dates: start: 202307
  9. CLOZAPINE [Suspect]
     Active Substance: CLOZAPINE
     Indication: Delusion
     Dosage: REGIMEN #2
     Route: 065
     Dates: start: 202307
  10. HALOPERIDOL DECANOATE [Concomitant]
     Active Substance: HALOPERIDOL DECANOATE
     Indication: Product used for unknown indication
     Dosage: 200MG EVERY 4WEEKS
     Route: 065
  11. CHLORPROMAZINE [Concomitant]
     Active Substance: CHLORPROMAZINE
     Indication: Product used for unknown indication
     Dosage: 100MG TWICE DAILY
     Route: 065
  12. CLONAZEPAM [Concomitant]
     Active Substance: CLONAZEPAM
     Indication: Product used for unknown indication
     Dosage: 1MG 3 TIMES DAILY
     Route: 065
  13. DIVALPROEX SODIUM [Concomitant]
     Active Substance: DIVALPROEX SODIUM
     Indication: Product used for unknown indication
     Dosage: 500MG 3 TIMES DAILY
     Route: 065

REACTIONS (4)
  - Pneumonia bacterial [Recovered/Resolved]
  - Off label use [Unknown]
  - COVID-19 [Recovered/Resolved]
  - Salivary hypersecretion [Unknown]

NARRATIVE: CASE EVENT DATE: 20230701
